FAERS Safety Report 16145982 (Version 1)
Quarter: 2019Q2

REPORT INFORMATION
  Report Type: Spontaneous
  Country: ES (occurrence: ES)
  Receive Date: 20190402
  Receipt Date: 20190402
  Transmission Date: 20190711
  Serious: Yes (Death)
  Sender: FDA-Public Use
  Company Number: ES-ACCORD-117461

PATIENT
  Age: 89 Year
  Sex: Male

DRUGS (2)
  1. ESIDREX [Concomitant]
     Active Substance: HYDROCHLOROTHIAZIDE
     Indication: HYPERTENSION
     Dosage: STRENGTH 25 MG,1/2 TABLET PER DAY
     Route: 048
     Dates: start: 20020101
  2. MITOMYCIN. [Suspect]
     Active Substance: MITOMYCIN
     Indication: BLADDER CANCER
     Dosage: 40 MG X 20 DOSES
     Route: 043
     Dates: start: 20110330, end: 20111025

REACTIONS (2)
  - Chronic myeloid leukaemia [Fatal]
  - Malignant melanoma [Fatal]

NARRATIVE: CASE EVENT DATE: 20171117
